FAERS Safety Report 7914194-4 (Version None)
Quarter: 2011Q4

REPORT INFORMATION
  Report Type: 
  Country: None (occurrence: None)
  Receive Date: 20111115
  Receipt Date: 20111115
  Transmission Date: 20120403
  Serious: Yes (Other)
  Sender: FDA-Public Use
  Company Number: None

PATIENT
  Sex: Female
  Weight: 112.49 kg

DRUGS (1)
  1. NIASPAN [Suspect]
     Indication: BLOOD CHOLESTEROL
     Dosage: 1/2
     Route: 048
     Dates: start: 20100601, end: 20110715

REACTIONS (3)
  - SKIN DISCOLOURATION [None]
  - OEDEMA [None]
  - UPPER LIMB FRACTURE [None]
